FAERS Safety Report 4680118-9 (Version None)
Quarter: 2005Q2

REPORT INFORMATION
  Report Type: 
  Country: None (occurrence: None)
  Receive Date: 20050602
  Receipt Date: 20050524
  Transmission Date: 20051028
  Serious: Yes (Death)
  Sender: FDA-Public Use
  Company Number: RO-SANOFI-SYNTHELABO-A01200503534

PATIENT
  Sex: Male

DRUGS (8)
  1. PLAVIX [Suspect]
     Indication: MYOCARDIAL INFARCTION
     Route: 048
     Dates: start: 20041023
  2. PLAVIX [Suspect]
     Indication: CARDIAC ANEURYSM
     Route: 048
     Dates: start: 20041023
  3. PLAVIX [Suspect]
     Indication: CORONARY ANGIOPLASTY
     Route: 048
     Dates: start: 20041023
  4. ACETYLSALICYLIC ACID [Concomitant]
     Indication: MYOCARDIAL INFARCTION
     Route: 048
  5. METOPROLOL [Concomitant]
     Indication: MYOCARDIAL INFARCTION
     Route: 048
  6. TRIMETAZIDINE [Concomitant]
     Indication: MYOCARDIAL INFARCTION
     Route: 048
  7. DILTIAZEM [Concomitant]
     Indication: HYPERTENSION
     Route: 048
  8. INDAPAMIDE [Concomitant]
     Indication: HYPERTENSION
     Route: 048

REACTIONS (1)
  - SUDDEN DEATH [None]
